FAERS Safety Report 24186267 (Version 1)
Quarter: 2024Q3

REPORT INFORMATION
  Report Type: Report from Study
  Country: US (occurrence: None)
  Receive Date: 20240808
  Receipt Date: 20240808
  Transmission Date: 20241017
  Serious: Yes (Other)
  Sender: ASTRAZENECA
  Company Number: 2022A138538

PATIENT
  Sex: Female

DRUGS (1)
  1. CALQUENCE [Suspect]
     Active Substance: ACALABRUTINIB
     Indication: Chronic lymphocytic leukaemia
     Route: 048

REACTIONS (7)
  - Nasal sinus cancer [Unknown]
  - Stomatitis [Unknown]
  - Depression [Unknown]
  - Systemic lupus erythematosus [Unknown]
  - Gastrointestinal disorder [Unknown]
  - Ear discomfort [Unknown]
  - Throat irritation [Unknown]
